FAERS Safety Report 5643889-0 (Version None)
Quarter: 2008Q1

REPORT INFORMATION
  Report Type: 
  Country: None (occurrence: None)
  Receive Date: 20080228
  Receipt Date: 20080221
  Transmission Date: 20080703
  Serious: No
  Sender: FDA-Public Use
  Company Number: SE-BAXTER-2008BH001326

PATIENT
  Age: 57 Year
  Sex: Male

DRUGS (1)
  1. ADVATE [Suspect]
     Indication: POLYCYTHAEMIA
     Route: 042
     Dates: start: 20071023

REACTIONS (2)
  - DRUG INEFFECTIVE [None]
  - HAEMORRHAGIC DIATHESIS [None]
